FAERS Safety Report 6590992-7 (Version None)
Quarter: 2010Q1

REPORT INFORMATION
  Report Type: 
  Country: None (occurrence: None)
  Receive Date: 20100219
  Receipt Date: 20100209
  Transmission Date: 20100710
  Serious: Yes (Hospitalization)
  Sender: FDA-Public Use
  Company Number: US-ELI_LILLY_AND_COMPANY-US201002002442

PATIENT
  Sex: Male

DRUGS (3)
  1. HUMULIN 70/30 [Suspect]
     Indication: BLOOD GLUCOSE INCREASED
     Dosage: 15 U, EACH MORNING
     Dates: start: 20050509
  2. HUMULIN 70/30 [Suspect]
     Dosage: 20 U, EACH EVENING
     Dates: start: 20050509
  3. COUMADIN [Concomitant]

REACTIONS (3)
  - BLOOD GLUCOSE INCREASED [None]
  - CARDIAC OPERATION [None]
  - POOR QUALITY DRUG ADMINISTERED [None]
